FAERS Safety Report 12573994 (Version 1)
Quarter: 2016Q3

REPORT INFORMATION
  Report Type: Spontaneous
  Country: US (occurrence: US)
  Receive Date: 20160720
  Receipt Date: 20160720
  Transmission Date: 20161109
  Serious: No
  Sender: FDA-Public Use
  Company Number: US-ASTRAZENECA-2016SE61169

PATIENT
  Sex: Female
  Weight: 90.7 kg

DRUGS (11)
  1. LOSARTAN. [Concomitant]
     Active Substance: LOSARTAN
     Indication: HYPERTENSION
     Route: 048
     Dates: start: 2006
  2. PLODOGREDL [Concomitant]
     Indication: CARDIAC DISORDER
     Route: 048
     Dates: start: 2008
  3. ASPIRIN. [Concomitant]
     Active Substance: ASPIRIN
     Indication: PULMONARY VASCULAR DISORDER
     Route: 048
     Dates: start: 2006
  4. BYDUREON [Suspect]
     Active Substance: EXENATIDE
     Indication: TYPE 2 DIABETES MELLITUS
     Dosage: 2 MG 4 COUNT,ONCE A WEEK
     Route: 058
     Dates: start: 20160515
  5. METFORMIN [Concomitant]
     Active Substance: METFORMIN HYDROCHLORIDE
     Indication: TYPE 2 DIABETES MELLITUS
     Route: 048
     Dates: start: 2006
  6. XANAX [Concomitant]
     Active Substance: ALPRAZOLAM
     Indication: PANIC ATTACK
     Route: 048
     Dates: start: 2012
  7. VITAMIN B12 [Concomitant]
     Active Substance: CYANOCOBALAMIN
     Indication: ASTHENIA
     Route: 048
     Dates: start: 2013
  8. LEVOTHYROXIN [Concomitant]
     Active Substance: LEVOTHYROXINE
     Indication: THYROID DISORDER
     Route: 048
     Dates: start: 2006
  9. CLONAZEPAM. [Concomitant]
     Active Substance: CLONAZEPAM
     Indication: MENTAL DISORDER
     Route: 048
  10. CINNAMON. [Concomitant]
     Active Substance: CINNAMON
     Indication: ASTHENIA
     Route: 048
     Dates: start: 2010
  11. GLIMIPRIDE [Concomitant]
     Active Substance: GLIMEPIRIDE
     Indication: TYPE 2 DIABETES MELLITUS
     Route: 048
     Dates: start: 2006

REACTIONS (2)
  - Contusion [Unknown]
  - Product quality issue [Unknown]
